FAERS Safety Report 11309814 (Version 3)
Quarter: 2015Q3

REPORT INFORMATION
  Report Type: Report from Study
  Country: BG (occurrence: BG)
  Receive Date: 20150724
  Receipt Date: 20150826
  Transmission Date: 20151125
  Serious: Yes (Life-Threatening, Hospitalization)
  Sender: FDA-Public Use
  Company Number: BG-AMGEN-BGRCT2015074152

PATIENT
  Age: 32 Year
  Sex: Male
  Weight: 106 kg

DRUGS (3)
  1. DEXAMETHASONE. [Concomitant]
     Active Substance: DEXAMETHASONE
     Dosage: 20 MG, UNK
     Dates: start: 20150627, end: 20150629
  2. ACETAMINOPHEN. [Concomitant]
     Active Substance: ACETAMINOPHEN
     Dosage: 500 TO 1000 MG, UNK
     Route: 042
     Dates: start: 20150701, end: 20150719
  3. BLINATUMOMAB [Suspect]
     Active Substance: BLINATUMOMAB
     Indication: ACUTE LYMPHOCYTIC LEUKAEMIA
     Dosage: 9 MUG, UNK
     Route: 041
     Dates: start: 20150630

REACTIONS (1)
  - Citrobacter infection [Recovered/Resolved]

NARRATIVE: CASE EVENT DATE: 20150719
